FAERS Safety Report 9251385 (Version 1)
Quarter: 2013Q1

REPORT INFORMATION
  Report Type: Spontaneous
  Country: US (occurrence: None)
  Receive Date: 20130305
  Receipt Date: 20130305
  Transmission Date: 20140127
  Serious: Yes (Other)
  Sender: FDA-Public Use
  Company Number: 163-21880-12081560

PATIENT
  Age: 61 Year
  Sex: Female
  Weight: 77.57 kg

DRUGS (4)
  1. REVLIMID [Suspect]
     Indication: PLASMA CELL MYELOMA
     Route: 048
     Dates: start: 20111129
  2. ASPIRIN (ACETYLSALICYLIC ACID) [Concomitant]
  3. CALCIUM + D (CALCIUM + VIT D) [Concomitant]
  4. NORVASC (AMLODIPINE BESILATE) [Concomitant]

REACTIONS (1)
  - Blood potassium decreased [None]
